FAERS Safety Report 23550867 (Version 1)
Quarter: 2024Q1

REPORT INFORMATION
  Report Type: Report from Study
  Country: HU (occurrence: HU)
  Receive Date: 20240221
  Receipt Date: 20240221
  Transmission Date: 20240410
  Serious: Yes (Hospitalization, Other)
  Sender: FDA-Public Use
  Company Number: HU-ABBVIE-5642826

PATIENT
  Sex: Female

DRUGS (8)
  1. CARBIDOPA\LEVODOPA [Suspect]
     Active Substance: CARBIDOPA\LEVODOPA
     Indication: Parkinson^s disease
     Dosage: MORNING DOSE: 3.9 ML; CONTINUOUS DOSE: 2.3 ML/HOUR; EXTRA DOSE: 2 ML
     Route: 050
     Dates: start: 20150127
  2. CARBIDOPA\LEVODOPA [Suspect]
     Active Substance: CARBIDOPA\LEVODOPA
  3. ASPIRIN [Concomitant]
     Active Substance: ASPIRIN
     Indication: Prophylaxis
     Dosage: 100 MILLIGRAM
     Route: 048
  4. XADAGO [Concomitant]
     Active Substance: SAFINAMIDE MESYLATE
     Indication: Parkinson^s disease
     Dosage: FORM STRENGTH: 100 MG
     Route: 048
     Dates: start: 20220923
  5. DONEPEZIL [Concomitant]
     Active Substance: DONEPEZIL
     Indication: Dementia
     Dosage: FORM STRENGTH 10 MILLIGRAM
     Route: 048
     Dates: start: 202105
  6. MEMANTINE [Concomitant]
     Active Substance: MEMANTINE
     Indication: Dementia
     Dosage: FORM STRGTH 10 MILLIGRAM
     Route: 048
  7. STALEVO [Concomitant]
     Active Substance: CARBIDOPA\ENTACAPONE\LEVODOPA
     Indication: Parkinson^s disease
     Dosage: 100 MG LEVODOPA, 25 MG BENSERAZIDE, 200 MG ENTACAPONE / CAPSULE
     Route: 048
  8. VENLAFAXINE HYDROCHLORIDE [Concomitant]
     Active Substance: VENLAFAXINE HYDROCHLORIDE
     Indication: Depression
     Dosage: 20 MILLIGRAM
     Route: 048

REACTIONS (6)
  - Abdominal pain [Recovering/Resolving]
  - Gastrointestinal hypomotility [Unknown]
  - Intestinal dilatation [Unknown]
  - Vomiting [Recovered/Resolved]
  - Intestinal prolapse [Recovered/Resolved]
  - Pylorus dilatation [Recovered/Resolved]

NARRATIVE: CASE EVENT DATE: 20240207
